FAERS Safety Report 5255956-4 (Version None)
Quarter: 2007Q1

REPORT INFORMATION
  Report Type: 
  Country: None (occurrence: None)
  Receive Date: 20070306
  Receipt Date: 20070221
  Transmission Date: 20070707
  Serious: Yes (Hospitalization, Other)
  Sender: FDA-Public Use
  Company Number: US-ELI_LILLY_AND_COMPANY-US200702004425

PATIENT
  Age: 72 Year
  Sex: Female

DRUGS (3)
  1. FORTEO [Suspect]
     Indication: OSTEOPENIA
     Dates: start: 20060301
  2. EVISTA [Suspect]
     Dates: start: 19960101, end: 20060301
  3. PROTONIX [Concomitant]

REACTIONS (2)
  - FALL [None]
  - HIP FRACTURE [None]
